FAERS Safety Report 6082711-8 (Version None)
Quarter: 2009Q1

REPORT INFORMATION
  Report Type: 
  Country: None (occurrence: None)
  Receive Date: 20090218
  Receipt Date: 20090211
  Transmission Date: 20090719
  Serious: Yes (Other)
  Sender: FDA-Public Use
  Company Number: US-AVENTIS-200910745GDDC

PATIENT
  Age: 68 Year
  Sex: Male
  Weight: 71.45 kg

DRUGS (20)
  1. TAXOTERE [Suspect]
     Dosage: DOSE: 420 AS TOTAL DOSE THIS COURSE
     Route: 042
     Dates: start: 20081015, end: 20081126
  2. PREDNISONE TAB [Suspect]
     Dosage: DOSE: 840 AS TOTAL DOSE THIS COURSE
     Route: 048
     Dates: start: 20081015, end: 20090113
  3. CODE UNBROKEN [Suspect]
     Dosage: DOSE: 800 AS TOTAL DOSE THIS COURSE
     Route: 048
     Dates: start: 20081015, end: 20090104
  4. DEXAMETHASONE TAB [Suspect]
     Dosage: DOSE: 72 AS TOTAL DOSE THIS COURSE
     Dates: start: 20081015, end: 20081127
  5. ALEVE [Concomitant]
     Route: 048
  6. CALCIUM [Concomitant]
     Route: 048
  7. FENTANYL [Concomitant]
     Dosage: DOSE: 50 MCG
  8. FISH OIL [Concomitant]
     Route: 048
  9. HYDROMORPHONE HCL [Concomitant]
     Route: 048
  10. LIPITOR [Concomitant]
     Route: 048
  11. LISINOPRIL [Concomitant]
     Route: 048
  12. MEGESTROL ACETATE [Concomitant]
     Dosage: DOSE QUANTITY: 40; DOSE UNIT: MILLIGRAM PER MILLILITRE
     Route: 048
  13. REGLAN [Concomitant]
     Route: 048
  14. MULTI-VITAMINS [Concomitant]
     Route: 048
  15. PANTOPRAZOLE [Concomitant]
     Route: 048
  16. PRILOSEC [Concomitant]
     Route: 048
  17. PROCHLORPERAZINE [Concomitant]
     Route: 048
  18. SENNA [Concomitant]
  19. SERTRALINE [Concomitant]
     Route: 048
  20. ASCORBIC ACID [Concomitant]
     Route: 048

REACTIONS (3)
  - PULMONARY EMBOLISM [None]
  - RETINAL VEIN OCCLUSION [None]
  - VISION BLURRED [None]
